FAERS Safety Report 19023625 (Version 1)
Quarter: 2021Q1

REPORT INFORMATION
  Report Type: Spontaneous
  Country: US (occurrence: US)
  Receive Date: 20210318
  Receipt Date: 20210318
  Transmission Date: 20210420
  Serious: No
  Sender: FDA-Public Use
  Company Number: US-AUROBINDO-AUR-APL-2020-060794

PATIENT
  Age: 87 Year
  Sex: Female

DRUGS (7)
  1. GABAPENTIN CAPSULES 100 MG [Suspect]
     Active Substance: GABAPENTIN
     Indication: ANXIETY
     Dosage: 100 MILLIGRAM, DAILY
     Route: 048
     Dates: start: 20201105
  2. GABAPENTIN CAPSULES 100 MG [Suspect]
     Active Substance: GABAPENTIN
     Dosage: 200 MILLIGRAM, DAILY
     Route: 048
  3. DIURETIC [Concomitant]
     Active Substance: UNSPECIFIED INGREDIENT
     Indication: PRODUCT USED FOR UNKNOWN INDICATION
     Dosage: UNK
     Route: 065
  4. GABAPENTIN CAPSULES 100 MG [Suspect]
     Active Substance: GABAPENTIN
     Dosage: 300 MILLIGRAM, 3 TIMES A DAY
     Route: 048
  5. LEVOTHYROXINE. [Concomitant]
     Active Substance: LEVOTHYROXINE
     Indication: PRODUCT USED FOR UNKNOWN INDICATION
     Dosage: UNK
     Route: 065
  6. LIPITOR [Concomitant]
     Active Substance: ATORVASTATIN CALCIUM
     Indication: PRODUCT USED FOR UNKNOWN INDICATION
     Dosage: UNK
     Route: 065
  7. GABAPENTIN CAPSULES 100 MG [Suspect]
     Active Substance: GABAPENTIN
     Indication: INSOMNIA
     Dosage: UNK, (REPEATEDLY TITRATED BY THE HCP)
     Route: 048

REACTIONS (2)
  - Drug ineffective [Unknown]
  - Off label use [Unknown]
